FAERS Safety Report 8555387-5 (Version None)
Quarter: 2012Q3

REPORT INFORMATION
  Report Type: 
  Country: None (occurrence: None)
  Receive Date: 20120731
  Receipt Date: 20120221
  Transmission Date: 20120928
  Serious: No
  Sender: FDA-Public Use
  Company Number: US-ASTRAZENECA-2011SE41396

PATIENT
  Age: 30 Year
  Sex: Female

DRUGS (14)
  1. SEROQUEL [Suspect]
     Indication: BIPOLAR DISORDER
     Route: 048
  2. SEROQUEL [Suspect]
     Route: 048
     Dates: start: 20100101
  3. SEROQUEL [Suspect]
     Route: 048
     Dates: start: 20100101
  4. SEROQUEL [Suspect]
     Route: 048
  5. SEROQUEL [Suspect]
     Route: 048
  6. SEROQUEL [Suspect]
     Indication: SLEEP DISORDER
     Route: 048
  7. SEROQUEL [Suspect]
     Route: 048
  8. KLONOPIN [Concomitant]
  9. SEROQUEL [Suspect]
     Route: 048
     Dates: start: 20100101
  10. CELEXA [Concomitant]
  11. SEROQUEL [Suspect]
     Route: 048
  12. SEROQUEL [Suspect]
     Route: 048
  13. SEROQUEL [Suspect]
     Route: 048
  14. SEROQUEL [Suspect]
     Indication: ANXIETY
     Route: 048

REACTIONS (9)
  - SWELLING FACE [None]
  - OFF LABEL USE [None]
  - ADJUSTMENT DISORDER [None]
  - INCORRECT DOSE ADMINISTERED [None]
  - IRRITABILITY [None]
  - CRYING [None]
  - HYPOAESTHESIA ORAL [None]
  - AFFECT LABILITY [None]
  - DRUG DOSE OMISSION [None]
